FAERS Safety Report 13135686 (Version 3)
Quarter: 2017Q3

REPORT INFORMATION
  Report Type: Report from Study
  Country: ES (occurrence: ES)
  Receive Date: 20170120
  Receipt Date: 20170914
  Transmission Date: 20171127
  Serious: Yes (Death, Other)
  Sender: FDA-Public Use
  Company Number: ES-CELGENEUS-144-21660-14091920

PATIENT

DRUGS (3)
  1. ABRAXANE [Suspect]
     Active Substance: PACLITAXEL
     Indication: PANCREATIC CARCINOMA
     Route: 041
  2. GEMCITABINE [Concomitant]
     Active Substance: GEMCITABINE\GEMCITABINE HYDROCHLORIDE
     Indication: PANCREATIC CARCINOMA
     Route: 041
  3. ABRAXANE [Suspect]
     Active Substance: PACLITAXEL
     Route: 041

REACTIONS (25)
  - Enteritis [Unknown]
  - Alopecia [Unknown]
  - Haematotoxicity [Unknown]
  - Hepatic failure [Unknown]
  - Febrile neutropenia [Unknown]
  - Abdominal infection [Unknown]
  - Vomiting [Unknown]
  - Cholangitis [Unknown]
  - Thrombocytopenia [Unknown]
  - Death [Fatal]
  - Transaminases increased [Unknown]
  - Septic shock [Fatal]
  - Abdominal pain [Unknown]
  - Constipation [Unknown]
  - Pneumonia [Fatal]
  - Diarrhoea [Fatal]
  - Leukopenia [Unknown]
  - Neutropenia [Unknown]
  - Neurotoxicity [Unknown]
  - Fatigue [Unknown]
  - Nausea [Unknown]
  - Decreased appetite [Unknown]
  - Sepsis [Fatal]
  - Anaemia [Unknown]
  - Asthenia [Unknown]
